FAERS Safety Report 8406281-1 (Version None)
Quarter: 2012Q2

REPORT INFORMATION
  Report Type: 
  Country: None (occurrence: None)
  Receive Date: 20120604
  Receipt Date: 20120530
  Transmission Date: 20120825
  Serious: Yes (Death, Other)
  Sender: FDA-Public Use
  Company Number: PHHY2011CA74319

PATIENT
  Sex: Male

DRUGS (2)
  1. ZOMETA [Suspect]
     Indication: PROSTATE CANCER
     Dosage: 4 MG, EVERY FOUR WEEKS
     Route: 042
     Dates: start: 20110719, end: 20111201
  2. CHEMOTHERAPEUTICS NOS [Concomitant]

REACTIONS (9)
  - DEATH [None]
  - CYSTITIS [None]
  - NAUSEA [None]
  - EPISTAXIS [None]
  - RASH GENERALISED [None]
  - HEADACHE [None]
  - CHILLS [None]
  - MOOD SWINGS [None]
  - INSOMNIA [None]
